FAERS Safety Report 21160264 (Version 1)
Quarter: 2022Q3

REPORT INFORMATION
  Report Type: Report from Study
  Country: DO (occurrence: DO)
  Receive Date: 20220802
  Receipt Date: 20220802
  Transmission Date: 20221027
  Serious: Yes (Other)
  Sender: FDA-Public Use
  Company Number: DO-NOVARTISPH-NVSC2021DO253253

PATIENT
  Age: 68 Year
  Sex: Female

DRUGS (2)
  1. KISQALI [Suspect]
     Active Substance: RIBOCICLIB
     Indication: Breast cancer
     Dosage: 600 MG, QD
     Route: 048
     Dates: start: 20210915
  2. KISQALI [Suspect]
     Active Substance: RIBOCICLIB
     Dosage: 600 MG
     Route: 048
     Dates: start: 202109, end: 202204

REACTIONS (18)
  - Ischaemic stroke [Unknown]
  - Sleep disorder [Unknown]
  - Somnolence [Unknown]
  - Pain in jaw [Unknown]
  - Ear pain [Unknown]
  - Depressed mood [Unknown]
  - Arthralgia [Unknown]
  - Productive cough [Unknown]
  - Sneezing [Unknown]
  - Influenza [Unknown]
  - Pruritus [Unknown]
  - Cough [Unknown]
  - Back pain [Unknown]
  - Lung disorder [Unknown]
  - Clavicle fracture [Unknown]
  - Pain in extremity [Unknown]
  - Bone disorder [Unknown]
  - Product dose omission issue [Unknown]

NARRATIVE: CASE EVENT DATE: 20210915
